FAERS Safety Report 18202959 (Version 1)
Quarter: 2020Q3

REPORT INFORMATION
  Report Type: Other
  Country: MY (occurrence: MY)
  Receive Date: 20200827
  Receipt Date: 20200827
  Transmission Date: 20201103
  Serious: Yes (Life-Threatening, Hospitalization, Other)
  Sender: FDA-Public Use
  Company Number: MY-NOSTRUM LABORATORIES, INC.-2089090

PATIENT
  Age: 21 Year
  Sex: Male

DRUGS (1)
  1. VALPROIC ACID SOLUTION 250 MG/5 ML [Suspect]
     Active Substance: VALPROIC ACID
     Indication: GENERALISED TONIC-CLONIC SEIZURE
     Route: 048

REACTIONS (3)
  - Explorative laparotomy [Recovered/Resolved]
  - Type 1 diabetes mellitus [Not Recovered/Not Resolved]
  - Pancreatitis necrotising [Recovered/Resolved with Sequelae]
